FAERS Safety Report 12508043 (Version 1)
Quarter: 2016Q2

REPORT INFORMATION
  Report Type: Spontaneous
  Country: US (occurrence: None)
  Receive Date: 20160628
  Receipt Date: 20160628
  Transmission Date: 20160815
  Serious: Yes (Other)
  Sender: FDA-Public Use
  Company Number: None

PATIENT
  Age: 21 Month
  Sex: Male
  Weight: 8.25 kg

DRUGS (1)
  1. VINCRISTINE [Suspect]
     Active Substance: VINCRISTINE

REACTIONS (6)
  - Cough [None]
  - Respiratory rate increased [None]
  - Dyspnoea [None]
  - Wheezing [None]
  - Agitation [None]
  - Immediate post-injection reaction [None]

NARRATIVE: CASE EVENT DATE: 20160621
